FAERS Safety Report 11221624 (Version 2)
Quarter: 2015Q3

REPORT INFORMATION
  Report Type: Spontaneous
  Country: US (occurrence: US)
  Receive Date: 20150626
  Receipt Date: 20150706
  Transmission Date: 20151125
  Serious: Yes (Hospitalization, Other)
  Sender: FDA-Public Use
  Company Number: US-SA-2015SA090501

PATIENT
  Age: 75 Year
  Sex: Female

DRUGS (1)
  1. ALLEGRA-D [Suspect]
     Active Substance: FEXOFENADINE\PSEUDOEPHEDRINE
     Indication: MULTIPLE ALLERGIES
     Route: 048

REACTIONS (7)
  - Medication residue present [Unknown]
  - Product quality issue [Unknown]
  - Neoplasm malignant [Unknown]
  - Gastric disorder [Unknown]
  - Pancreatic disorder [Unknown]
  - Condition aggravated [Unknown]
  - Malaise [Unknown]
